FAERS Safety Report 7162811-1 (Version None)
Quarter: 2010Q4

REPORT INFORMATION
  Report Type: 
  Country: None (occurrence: None)
  Receive Date: 20101215
  Receipt Date: 20091217
  Transmission Date: 20110411
  Serious: Yes (Hospitalization, Other)
  Sender: FDA-Public Use
  Company Number: US-PFIZER INC-2009300849

PATIENT
  Sex: Male
  Weight: 65.76 kg

DRUGS (6)
  1. SUTENT [Suspect]
     Indication: METASTATIC RENAL CELL CARCINOMA
     Dosage: 50 MG, 1X/DAY
     Route: 048
     Dates: start: 20090801
  2. ACETAMINOPHEN W/ CODEINE [Concomitant]
     Indication: PAIN
     Dosage: UNK
  3. HYOSCYAMINE [Concomitant]
     Dosage: 0.125 MG, UNK
  4. COMPAZINE [Concomitant]
     Dosage: 10 MG, AS NEEDED
     Dates: start: 20090801
  5. ZEGERID [Concomitant]
     Dosage: 40 MG, 1X/DAY
  6. AZITHROMYCIN [Concomitant]

REACTIONS (3)
  - CHOLECYSTITIS [None]
  - PANCREATITIS [None]
  - WEIGHT DECREASED [None]
